FAERS Safety Report 8326503-5 (Version None)
Quarter: 2012Q1

REPORT INFORMATION
  Report Type: 
  Country: None (occurrence: None)
  Receive Date: 20120315
  Receipt Date: 20110228
  Transmission Date: 20120608
  Serious: No
  Sender: FDA-Public Use
  Company Number: PHHY2011US16957

PATIENT
  Age: 41 Year
  Sex: Female

DRUGS (2)
  1. IMMUNE GLOBULIN (HUMAN) [Suspect]
     Dosage: BIMONTHLY, INTRAVENOUS
     Route: 042
  2. GILENYA [Suspect]
     Indication: MULTIPLE SCLEROSIS
     Dosage: 0.5 MG, QD, ORAL
     Route: 048
     Dates: start: 20110210

REACTIONS (3)
  - ABDOMINAL PAIN UPPER [None]
  - NAUSEA [None]
  - MUSCLE SPASMS [None]
